FAERS Safety Report 9500347 (Version 1)
Quarter: 2013Q3

REPORT INFORMATION
  Report Type: Spontaneous
  Country: US (occurrence: None)
  Receive Date: 20130903
  Receipt Date: 20130903
  Transmission Date: 20140515
  Serious: Yes (Other)
  Sender: FDA-Public Use
  Company Number: AUR-APL-2013-07270

PATIENT
  Age: 71 Year
  Sex: Male
  Weight: 100 kg

DRUGS (9)
  1. LISINOPRIL [Suspect]
     Dosage: 40 MG, 1 D, UNKNOWN
  2. METFORMIN [Suspect]
     Dosage: 200 MG (100 MG, 2 IN 1 D), UNKNOWN
  3. CARVEDILOL [Suspect]
     Dosage: 50 MG (25 MG, 2 IN 1 D), ORAL
     Route: 048
  4. MONTELUKAST [Suspect]
     Dosage: 10 MG, 1 D, UNKNOWN
  5. VIAGRA (SILDENAFIL CITRATE) [Suspect]
     Dosage: 100 MG, AS REQUIRED, ORAL
     Route: 048
  6. FUROSEMIDE [Suspect]
     Dosage: 40 MG, 1 D, ORAL
     Route: 048
     Dates: start: 2013
  7. ALLOPURINOL [Suspect]
     Dosage: 300 MG (100 MG, 3 IN 1 D), ORAL
     Route: 048
     Dates: start: 2013
  8. POTASSIUM [Suspect]
     Dosage: 20 MILLIEQUIVALENTS, 1 D, ORAL
     Route: 048
     Dates: start: 2013
  9. HYDRALAZINE (HYDRALAZINE) [Suspect]
     Dosage: 150 MG (50 MG, 3 IN 1 D) ORAL
     Route: 048
     Dates: start: 2013

REACTIONS (5)
  - Drug ineffective [None]
  - Drug interaction [None]
  - Diabetes mellitus [None]
  - Hypertension [None]
  - Therapeutic response decreased [None]
